FAERS Safety Report 11098322 (Version 4)
Quarter: 2015Q3

REPORT INFORMATION
  Report Type: Report from Study
  Country: KR (occurrence: KR)
  Receive Date: 20150507
  Receipt Date: 20150707
  Transmission Date: 20151125
  Serious: Yes (Hospitalization, Other)
  Sender: FDA-Public Use
  Company Number: KR-GILEAD-2015-0151672

PATIENT
  Age: 68 Year
  Sex: Female
  Weight: 45.4 kg

DRUGS (31)
  1. TRESTAN                            /00056201/ [Concomitant]
     Dosage: UNK
     Dates: start: 20150127, end: 20150128
  2. AMICETA [Concomitant]
     Dosage: 325 MG, UNK
     Dates: start: 20150105, end: 20150123
  3. DIABEX [Concomitant]
     Active Substance: METFORMIN HYDROCHLORIDE
     Dosage: UNK
     Dates: start: 20140813
  4. AMODIPIN [Concomitant]
     Dosage: UNK
     Dates: start: 20140813
  5. SOLETON [Concomitant]
     Active Substance: ZALTOPROFEN
     Dosage: 80 MG, UNK
     Dates: start: 20150327, end: 20150403
  6. GRANDPAZE S [Concomitant]
     Dosage: UNK
     Dates: start: 20141208
  7. FRAVASOL [Concomitant]
     Dosage: 8.5 %, UNK
     Dates: start: 20150125, end: 20150125
  8. ALGIRON [Concomitant]
     Dosage: UNK
     Dates: start: 20140505, end: 20140714
  9. AROBEST [Concomitant]
     Dosage: 20 MG, UNK
     Dates: start: 20150327, end: 20150403
  10. GALVUS [Concomitant]
     Active Substance: VILDAGLIPTIN
     Dosage: UNK
     Dates: start: 20150417
  11. PANTOLOC                           /01263204/ [Concomitant]
     Active Substance: PANTOPRAZOLE SODIUM
     Dosage: UNK
     Dates: start: 20140516
  12. NICETILE [Concomitant]
     Active Substance: ACETYLCARNITINE HYDROCHLORIDE
     Dosage: 500 MG, UNK
     Dates: start: 20150419
  13. LAMINA-G [Concomitant]
     Dosage: 20 ML, UNK
     Dates: start: 20150126
  14. RABIET [Concomitant]
     Dosage: UNK
     Dates: start: 20140714, end: 20150205
  15. LANSTON [Concomitant]
     Active Substance: LANSOPRAZOLE
     Dosage: 15 MG, UNK
     Dates: start: 20150327, end: 20150403
  16. GASMOTIN [Concomitant]
     Active Substance: MOSAPRIDE CITRATE
     Dosage: 5 MG, UNK
     Dates: start: 20140509
  17. MACPERAN [Concomitant]
     Dosage: 5 MG, UNK
     Dates: start: 20150124
  18. PHENIRAMIN [Concomitant]
     Dosage: UNK
     Dates: start: 20150124, end: 20150127
  19. MEGESTROL ACETATE. [Concomitant]
     Active Substance: MEGESTROL ACETATE
     Dosage: UNK
     Dates: start: 20140522, end: 20140717
  20. PLETAAL [Concomitant]
     Active Substance: CILOSTAZOL
     Dosage: 100 MG, UNK
     Dates: start: 20150422
  21. TALION                             /01587402/ [Concomitant]
     Active Substance: BEPOTASTINE
     Dosage: UNK
     Dates: start: 20140917, end: 20140924
  22. TENOFOVIR DISOPROXIL FUMARATE. [Suspect]
     Active Substance: TENOFOVIR DISOPROXIL FUMARATE
     Indication: PRODUCT USED FOR UNKNOWN INDICATION
     Dosage: 300 MG, QD
     Route: 048
     Dates: start: 20140616
  23. MUCOSTA [Concomitant]
     Active Substance: REBAMIPIDE
     Dosage: 100 MG, UNK
     Dates: start: 20150126
  24. NEXIUM [Concomitant]
     Active Substance: ESOMEPRAZOLE MAGNESIUM
     Dosage: 40 MG, UNK
     Dates: start: 20150123, end: 20150205
  25. LIDOMEX [Concomitant]
     Active Substance: PREDNISOLONE VALERATE ACETATE
     Dosage: 0.3 %, UNK
     Route: 061
  26. PRIMALAN [Concomitant]
     Active Substance: MEQUITAZINE
     Dosage: UNK
     Dates: start: 20140526, end: 20140902
  27. COZARTAN [Concomitant]
     Dosage: UNK
     Dates: start: 20140813
  28. STILNOX [Concomitant]
     Active Substance: ZOLPIDEM TARTRATE
     Dosage: UNK
     Dates: start: 20150127
  29. FLURAZEPAM [Concomitant]
     Active Substance: FLURAZEPAM\FLURAZEPAM HYDROCHLORIDE
     Dosage: 15 MG, UNK
     Dates: start: 20150206
  30. ULTRACET [Concomitant]
     Active Substance: ACETAMINOPHEN\TRAMADOL HYDROCHLORIDE
     Dosage: UNK
     Dates: start: 20140917, end: 20150107
  31. ALDACTONE [Concomitant]
     Active Substance: SPIRONOLACTONE
     Dosage: UNK
     Dates: start: 20140508, end: 20140714

REACTIONS (12)
  - Osteoporosis [Not Recovered/Not Resolved]
  - Seizure [Recovered/Resolved]
  - Postictal state [Recovered/Resolved]
  - Seizure [Recovered/Resolved]
  - Osteoarthritis [Unknown]
  - Eye movement disorder [Recovered/Resolved]
  - Cerebral infarction [Recovering/Resolving]
  - Urinary tract infection [Unknown]
  - Humerus fracture [Unknown]
  - Tardive dyskinesia [Recovered/Resolved]
  - Metabolic encephalopathy [Unknown]
  - Muscle twitching [Recovered/Resolved]

NARRATIVE: CASE EVENT DATE: 20150327
